FAERS Safety Report 12834632 (Version 1)
Quarter: 2016Q4

REPORT INFORMATION
  Report Type: Spontaneous
  Country: GB (occurrence: GB)
  Receive Date: 20161010
  Receipt Date: 20161010
  Transmission Date: 20170207
  Serious: Yes (Other)
  Sender: FDA-Public Use
  Company Number: GB-PFIZER INC-2016466726

PATIENT
  Sex: Female

DRUGS (1)
  1. PREGABALIN. [Suspect]
     Active Substance: PREGABALIN
     Indication: ANXIETY DISORDER
     Dosage: 30 MG, UNK
     Route: 065
     Dates: start: 201609

REACTIONS (7)
  - Chest discomfort [Unknown]
  - Diarrhoea [Unknown]
  - Product substitution issue [Unknown]
  - Drug ineffective [Unknown]
  - Withdrawal syndrome [Unknown]
  - Loss of consciousness [Unknown]
  - Tremor [Unknown]
